FAERS Safety Report 9945187 (Version 1)
Quarter: 2014Q1

REPORT INFORMATION
  Report Type: Report from Study
  Country: US (occurrence: US)
  Receive Date: 20140303
  Receipt Date: 20140303
  Transmission Date: 20141002
  Serious: No
  Sender: FDA-Public Use
  Company Number: US-ABBVIE-13P-163-1053666-00

PATIENT
  Age: 43 Year
  Sex: Male

DRUGS (6)
  1. HUMIRA [Suspect]
     Indication: CROHN^S DISEASE
     Dates: start: 20121016
  2. LOSARTAN [Concomitant]
     Indication: HYPERTENSION
     Dosage: 12.5 MG DAILY
  3. OMEPRAZOLE [Concomitant]
     Indication: GASTROOESOPHAGEAL REFLUX DISEASE
     Dosage: 40 MG DAILY
  4. AMLODIPINE [Concomitant]
     Indication: HYPERTENSION
     Dosage: 10 MG DAILY
  5. HCTZ [Concomitant]
     Indication: HYPERTENSION
     Dosage: 25 MG DAILY
  6. METOPROLOL [Concomitant]
     Indication: HEART RATE INCREASED
     Dosage: 50 MG DAILY

REACTIONS (2)
  - Diarrhoea [Recovering/Resolving]
  - Arthralgia [Recovering/Resolving]
